FAERS Safety Report 9186733 (Version 1)
Quarter: 2013Q1

REPORT INFORMATION
  Report Type: Spontaneous
  Country: US (occurrence: US)
  Receive Date: 20130325
  Receipt Date: 20130325
  Transmission Date: 20140127
  Serious: No
  Sender: FDA-Public Use
  Company Number: US-009507513-1303USA008812

PATIENT
  Age: 64 Year
  Sex: Female

DRUGS (2)
  1. COSOPT PF [Suspect]
     Indication: GLAUCOMA
     Dosage: 1 DROP IN EACH EYE, BID
     Route: 047
     Dates: start: 20130313
  2. TRAVATAN [Concomitant]

REACTIONS (3)
  - Drug ineffective [Unknown]
  - Dizziness [Unknown]
  - Incorrect dose administered [Unknown]
